FAERS Safety Report 23920473 (Version 1)
Quarter: 2024Q2

REPORT INFORMATION
  Report Type: Spontaneous
  Country: DE (occurrence: DE)
  Receive Date: 20240530
  Receipt Date: 20240530
  Transmission Date: 20240715
  Serious: Yes (Hospitalization)
  Sender: FDA-Public Use
  Company Number: DE-CMP PHARMA-2024CMP00021

PATIENT
  Age: 76 Year
  Sex: Female

DRUGS (1)
  1. TRIAMCINOLONE [Suspect]
     Active Substance: TRIAMCINOLONE
     Indication: Neuromyelitis optica spectrum disorder
     Dosage: EVERY 6 MONTHS WITH ACCUMULATIVE DOSE 80 MG OVER 2 DAYS
     Route: 037
     Dates: start: 201906, end: 2023

REACTIONS (2)
  - Pleocytosis [Recovered/Resolved]
  - Meningitis chemical [Recovered/Resolved]

NARRATIVE: CASE EVENT DATE: 20220421
